FAERS Safety Report 21120050 (Version 2)
Quarter: 2022Q3

REPORT INFORMATION
  Report Type: Spontaneous
  Country: GB (occurrence: GB)
  Receive Date: 20220722
  Receipt Date: 20220728
  Transmission Date: 20221026
  Serious: No
  Sender: FDA-Public Use
  Company Number: None

PATIENT
  Age: 63 Year
  Sex: Female
  Weight: 68 kg

DRUGS (2)
  1. PAXLOVID [Suspect]
     Active Substance: NIRMATRELVIR\RITONAVIR
     Indication: COVID-19 treatment
     Dosage: UNK
  2. FILGOTINIB [Concomitant]
     Active Substance: FILGOTINIB
     Dosage: UNK

REACTIONS (4)
  - Dysgeusia [Not Recovered/Not Resolved]
  - Taste disorder [Unknown]
  - Breath odour [Unknown]
  - Medication error [Unknown]

NARRATIVE: CASE EVENT DATE: 20220715
